FAERS Safety Report 10026461 (Version 2)
Quarter: 2014Q2

REPORT INFORMATION
  Report Type: Spontaneous
  Country: IN (occurrence: IN)
  Receive Date: 20140321
  Receipt Date: 20140402
  Transmission Date: 20141212
  Serious: Yes (Other)
  Sender: FDA-Public Use
  Company Number: IN-PFIZER INC-2014079486

PATIENT
  Age: 50 Year
  Sex: Female

DRUGS (5)
  1. METFORMIN HCL [Suspect]
     Indication: BLOOD GLUCOSE ABNORMAL
     Dosage: UNK
     Route: 065
  2. RAMIPRIL [Suspect]
     Dosage: UNK
     Route: 065
  3. TORASEMIDE [Suspect]
     Dosage: UNK
     Route: 065
  4. ATORVASTATIN CALCIUM [Suspect]
     Dosage: UNK
     Route: 065
  5. GLIMEPIRIDE [Suspect]
     Dosage: UNK
     Route: 065

REACTIONS (8)
  - Atrial fibrillation [Recovered/Resolved]
  - Hemiparesis [Recovered/Resolved]
  - Pulmonary hypertension [Unknown]
  - Depressed level of consciousness [Unknown]
  - Dyspnoea exertional [Unknown]
  - Chest pain [Unknown]
  - Dizziness [Unknown]
  - Sleep apnoea syndrome [Unknown]
